FAERS Safety Report 25462553 (Version 1)
Quarter: 2025Q2

REPORT INFORMATION
  Report Type: Report from Study
  Country: MY (occurrence: MY)
  Receive Date: 20250620
  Receipt Date: 20250620
  Transmission Date: 20250716
  Serious: Yes (Hospitalization)
  Sender: DR REDDYS
  Company Number: MY-MYS-MYS/2025/05/006846

PATIENT
  Age: 76 Year
  Sex: Female

DRUGS (1)
  1. SEVELAMER CARBONATE [Suspect]
     Active Substance: SEVELAMER CARBONATE
     Indication: Hyperphosphataemia
     Route: 048

REACTIONS (2)
  - Fistula repair [Unknown]
  - Inappropriate schedule of product administration [Unknown]
